FAERS Safety Report 5839281-6 (Version None)
Quarter: 2008Q3

REPORT INFORMATION
  Report Type: 
  Country: None (occurrence: None)
  Receive Date: 20080806
  Receipt Date: 20080728
  Transmission Date: 20090109
  Serious: Yes (Death, Hospitalization)
  Sender: FDA-Public Use
  Company Number: FABR-12257

PATIENT
  Age: 76 Year
  Sex: Male
  Weight: 40 kg

DRUGS (7)
  1. FABRAZYME [Suspect]
     Indication: FABRY'S DISEASE
     Dosage: 40 MG, Q2W, INTRAVENOUS
     Route: 042
     Dates: start: 20050210, end: 20070801
  2. PIMOBENDAN (PIMOBENDAN) [Concomitant]
  3. DIURETICS [Concomitant]
  4. ACETAMINOPHEN [Concomitant]
  5. HYDROXYZINE [Concomitant]
  6. SPIRONOLACTONE [Concomitant]
  7. CARVEDILOL [Concomitant]

REACTIONS (6)
  - CARDIAC FAILURE [None]
  - CONDITION AGGRAVATED [None]
  - DISEASE PROGRESSION [None]
  - MITRAL VALVE PROLAPSE [None]
  - PNEUMONIA ASPIRATION [None]
  - TRICUSPID VALVE INCOMPETENCE [None]
